FAERS Safety Report 9476224 (Version 1)
Quarter: 2013Q3

REPORT INFORMATION
  Report Type: Spontaneous
  Country: US (occurrence: US)
  Receive Date: 20130826
  Receipt Date: 20130826
  Transmission Date: 20140515
  Serious: Yes (Other)
  Sender: FDA-Public Use
  Company Number: US-SANOFI-AVENTIS-2013SA083559

PATIENT
  Age: 55 Year
  Sex: Female

DRUGS (3)
  1. LANTUS SOLOSTAR [Suspect]
     Indication: DIABETES MELLITUS
     Dosage: 75-80 UNITS
     Route: 058
  2. IBUPROFEN [Suspect]
     Route: 065
  3. SOLOSTAR [Concomitant]

REACTIONS (8)
  - Cerebrovascular accident [Unknown]
  - Diabetic ketoacidosis [Unknown]
  - Abdominal pain upper [Unknown]
  - Dysgeusia [Unknown]
  - Hypersensitivity [Unknown]
  - Urticaria [Unknown]
  - Swelling [Unknown]
  - Pruritus [Unknown]
